FAERS Safety Report 23514912 (Version 2)
Quarter: 2024Q1

REPORT INFORMATION
  Report Type: Spontaneous
  Country: JP (occurrence: JP)
  Receive Date: 20240212
  Receipt Date: 20240219
  Transmission Date: 20240410
  Serious: Yes (Hospitalization)
  Sender: FDA-Public Use
  Company Number: JP-002147023-NVSJ2024JP001916

PATIENT
  Sex: Male

DRUGS (1)
  1. VOTRIENT [Suspect]
     Active Substance: PAZOPANIB HYDROCHLORIDE
     Indication: Renal cell carcinoma
     Dosage: UNK
     Route: 048
     Dates: start: 202312, end: 202402

REACTIONS (3)
  - Hepatic function abnormal [Recovering/Resolving]
  - Jaundice [Unknown]
  - Metastasis [Unknown]
